FAERS Safety Report 22605828 (Version 2)
Quarter: 2023Q2

REPORT INFORMATION
  Report Type: Report from Study
  Country: US (occurrence: US)
  Receive Date: 20230615
  Receipt Date: 20230626
  Transmission Date: 20230722
  Serious: Yes (Hospitalization)
  Sender: FDA-Public Use
  Company Number: US-JNJFOC-20230524421

PATIENT
  Age: 63 Year
  Sex: Female
  Weight: 80 kg

DRUGS (3)
  1. TECLISTAMAB [Suspect]
     Active Substance: TECLISTAMAB
     Indication: Plasma cell myeloma
     Dosage: 60 UG/KG, FIRST PRIMING DOSE
     Route: 058
     Dates: start: 20230417
  2. TECLISTAMAB [Suspect]
     Active Substance: TECLISTAMAB
     Dosage: 300 UG/KG
     Route: 058
     Dates: start: 20230420
  3. TECLISTAMAB [Suspect]
     Active Substance: TECLISTAMAB
     Dosage: MED KIT NO. C1D1: 870002?1500 MG/KG
     Route: 058
     Dates: start: 20230424

REACTIONS (1)
  - Escherichia urinary tract infection [Recovered/Resolved]

NARRATIVE: CASE EVENT DATE: 20230505
